FAERS Safety Report 5112500-X (Version None)
Quarter: 2006Q3

REPORT INFORMATION
  Report Type: 
  Country: None (occurrence: None)
  Receive Date: 20060802
  Receipt Date: 20060407
  Transmission Date: 20061208
  Serious: No
  Sender: FDA-Public Use
  Company Number: 200613322US

PATIENT
  Age: 49 Year
  Sex: Female

DRUGS (2)
  1. KETEK [Suspect]
     Indication: SINUSITIS
     Dosage: 400 MG QD PO
     Route: 048
     Dates: start: 20060406, end: 20060406
  2. OMEPRAZOLE [Concomitant]

REACTIONS (4)
  - DIZZINESS [None]
  - ORAL MUCOSAL BLISTERING [None]
  - STOMACH DISCOMFORT [None]
  - VISION BLURRED [None]
